FAERS Safety Report 21480202 (Version 1)
Quarter: 2022Q4

REPORT INFORMATION
  Report Type: Report from Study
  Country: US (occurrence: US)
  Receive Date: 20221019
  Receipt Date: 20221019
  Transmission Date: 20230113
  Serious: No
  Sender: FDA-Public Use
  Company Number: US-ABBVIE-4145723

PATIENT
  Age: 54 Year
  Sex: Female

DRUGS (5)
  1. ORIAHNN [Suspect]
     Active Substance: ELAGOLIX SODIUM\ESTRADIOL\NORETHINDRONE
     Indication: Uterine leiomyoma
     Route: 048
     Dates: start: 202208
  2. ORIAHNN [Suspect]
     Active Substance: ELAGOLIX SODIUM\ESTRADIOL\NORETHINDRONE
     Indication: Uterine leiomyoma
     Route: 048
     Dates: start: 202208
  3. Moderna [Concomitant]
     Indication: COVID-19 immunisation
     Dosage: FIRST DOSE?ONE IN ONCE
     Route: 030
     Dates: start: 20210226, end: 20210226
  4. Moderna [Concomitant]
     Indication: COVID-19 immunisation
     Dosage: SECOND DOSE?ONE IN ONCE
     Route: 030
     Dates: start: 20210326, end: 20210326
  5. Moderna [Concomitant]
     Indication: COVID-19 immunisation
     Dosage: THIRD DOSE?ONE IN ONCE
     Route: 030
     Dates: start: 20220106, end: 20220106

REACTIONS (1)
  - Intermenstrual bleeding [Not Recovered/Not Resolved]

NARRATIVE: CASE EVENT DATE: 20220901
